FAERS Safety Report 23705910 (Version 1)
Quarter: 2024Q2

REPORT INFORMATION
  Report Type: Spontaneous
  Country: US (occurrence: None)
  Receive Date: 20240403
  Receipt Date: 20240403
  Transmission Date: 20240715
  Serious: Yes (Hospitalization)
  Sender: FDA-Public Use
  Company Number: None

PATIENT
  Age: 47 Year
  Sex: Female
  Weight: 53.5 kg

DRUGS (1)
  1. ENTYVIO [Suspect]
     Active Substance: VEDOLIZUMAB
     Indication: Crohn^s disease
     Dosage: 300 MG WEEK 0,2, 6 INTRAVENOUS?
     Route: 042
     Dates: start: 20240109, end: 20240219

REACTIONS (9)
  - Hyperhidrosis [None]
  - Fatigue [None]
  - Arthralgia [None]
  - Chills [None]
  - Rash [None]
  - Headache [None]
  - Bronchitis [None]
  - Visual impairment [None]
  - Small intestinal obstruction [None]

NARRATIVE: CASE EVENT DATE: 20240219
